FAERS Safety Report 7939243-9 (Version None)
Quarter: 2011Q4

REPORT INFORMATION
  Report Type: 
  Country: None (occurrence: None)
  Receive Date: 20111124
  Receipt Date: 20111117
  Transmission Date: 20120403
  Serious: No
  Sender: FDA-Public Use
  Company Number: US-JNJFOC-20110910401

PATIENT
  Sex: Female

DRUGS (8)
  1. BENADRYL [Concomitant]
     Route: 048
     Dates: start: 20080722
  2. GOLIMUMAB [Suspect]
     Indication: COLITIS ULCERATIVE
     Route: 058
     Dates: start: 20110906
  3. PROTONIX [Concomitant]
     Route: 048
     Dates: start: 19980101
  4. ACETAMINOPHEN [Concomitant]
     Route: 048
     Dates: start: 20090801
  5. ZANTAC [Concomitant]
     Route: 048
     Dates: start: 19950101
  6. GOLIMUMAB [Suspect]
     Route: 058
     Dates: start: 20091203
  7. ASACOL [Concomitant]
     Indication: COLITIS ULCERATIVE
     Route: 048
     Dates: start: 20080722
  8. DOCUSATE [Concomitant]
     Route: 048
     Dates: start: 20100907

REACTIONS (1)
  - HYSTERECTOMY [None]
